FAERS Safety Report 16935981 (Version 6)
Quarter: 2025Q3

REPORT INFORMATION
  Report Type: Report from Study
  Country: US (occurrence: US)
  Receive Date: 20191018
  Receipt Date: 20250718
  Transmission Date: 20251021
  Serious: Yes (Hospitalization, Other)
  Sender: TAKEDA
  Company Number: US-SHIRE-US201916945

PATIENT
  Age: 56 Year
  Sex: Female

DRUGS (10)
  1. PARATHYROID HORMONE [Suspect]
     Active Substance: PARATHYROID HORMONE
     Indication: Hypoparathyroidism
  2. PARATHYROID HORMONE [Suspect]
     Active Substance: PARATHYROID HORMONE
     Dosage: 100 MICROGRAM, QD
  3. PARATHYROID HORMONE [Suspect]
     Active Substance: PARATHYROID HORMONE
     Dosage: 100 MICROGRAM, QD
  4. PARATHYROID HORMONE [Suspect]
     Active Substance: PARATHYROID HORMONE
  5. PARATHYROID HORMONE [Suspect]
     Active Substance: PARATHYROID HORMONE
  6. CALCIUM GLUCONATE MONOHYDRATE [Concomitant]
     Active Substance: CALCIUM GLUCONATE MONOHYDRATE
     Indication: Post procedural hypoparathyroidism
  7. CALCIUM [Concomitant]
     Active Substance: CALCIUM
     Indication: Post procedural hypoparathyroidism
  8. VITAMIN D [Concomitant]
     Active Substance: VITAMIN D NOS
     Indication: Post procedural hypoparathyroidism
  9. CALCITRIOL [Concomitant]
     Active Substance: CALCITRIOL
     Indication: Post procedural hypoparathyroidism
  10. HYDROCHLOROTHIAZIDE [Concomitant]
     Active Substance: HYDROCHLOROTHIAZIDE
     Indication: Post procedural hypoparathyroidism

REACTIONS (8)
  - Tetany [Not Recovered/Not Resolved]
  - Hypocalcaemia [Unknown]
  - Brain fog [Recovered/Resolved]
  - Malaise [Unknown]
  - Vision blurred [Unknown]
  - Recalled product [Unknown]
  - Device issue [Unknown]
  - Fatigue [Unknown]

NARRATIVE: CASE EVENT DATE: 20190617
